FAERS Safety Report 16427347 (Version 1)
Quarter: 2019Q2

REPORT INFORMATION
  Report Type: Spontaneous
  Country: IT (occurrence: IT)
  Receive Date: 20190613
  Receipt Date: 20190613
  Transmission Date: 20190711
  Serious: Yes (Other)
  Sender: FDA-Public Use
  Company Number: PHHY2019IT133727

PATIENT
  Sex: Female

DRUGS (3)
  1. ZOLEDRONATE [Suspect]
     Active Substance: ZOLEDRONIC ACID
     Indication: BREAST CANCER FEMALE
     Dosage: 4 MG, FOR 15 MIN AT THE BEGINNING OF TREATMENT AND EVERY 6 MONTHS
     Route: 042
  2. TRIPTORELIN [Concomitant]
     Active Substance: TRIPTORELIN
     Indication: BREAST CANCER FEMALE
     Dosage: 3.75 MG, UNK
     Route: 030
  3. LETROZOLE. [Suspect]
     Active Substance: LETROZOLE
     Indication: BREAST CANCER FEMALE
     Dosage: 2.5 MG, QD
     Route: 065

REACTIONS (1)
  - Osteonecrosis of jaw [Unknown]
